FAERS Safety Report 5780399-4 (Version None)
Quarter: 2008Q2

REPORT INFORMATION
  Report Type: 
  Country: None (occurrence: None)
  Receive Date: 20080620
  Receipt Date: 20080617
  Transmission Date: 20081010
  Serious: Yes (Death, Other)
  Sender: FDA-Public Use
  Company Number: CZ-BRISTOL-MYERS SQUIBB COMPANY-14234553

PATIENT

DRUGS (4)
  1. CARMUSTINE [Suspect]
     Indication: LYMPHOMA
  2. ETOPOSIDE [Suspect]
     Indication: LYMPHOMA
  3. CYTARABINE [Suspect]
     Indication: LYMPHOMA
  4. MELPHALAN [Suspect]
     Indication: LYMPHOMA

REACTIONS (3)
  - ACUTE MYELOID LEUKAEMIA [None]
  - PNEUMONIA [None]
  - SEPTIC SHOCK [None]
